FAERS Safety Report 8837555 (Version 2)
Quarter: 2012Q4

REPORT INFORMATION
  Report Type: 
  Country: FI (occurrence: FI)
  Receive Date: 20121012
  Receipt Date: 20121101
  Transmission Date: 20130627
  Serious: Yes (Hospitalization)
  Sender: FDA-Public Use
  Company Number: FI-PFIZER INC-2012249970

PATIENT
  Age: 75 Year
  Sex: Female
  Weight: 73 kg

DRUGS (7)
  1. TOVIAZ [Suspect]
     Indication: URGE INCONTINENCE
     Dosage: 4 mg, UNK
     Route: 048
     Dates: start: 20120829, end: 20120831
  2. SIMVASTATIN [Concomitant]
     Dosage: UNK
  3. PRIMASPAN [Concomitant]
     Dosage: 100 UNK, UNK
  4. FLIXOTIDE [Concomitant]
  5. VAGIFEM [Concomitant]
     Dosage: 10 UNK, UNK
  6. ZOPICLONE [Concomitant]
  7. CALCICHEW-D3 FORTE [Concomitant]

REACTIONS (5)
  - Hypoaesthesia oral [Recovered/Resolved]
  - Lip swelling [Recovered/Resolved]
  - Oropharyngeal pain [Recovered/Resolved]
  - Cough [Recovered/Resolved]
  - Diarrhoea [Recovered/Resolved]
